FAERS Safety Report 8534881 (Version 2)
Quarter: 2013Q1

REPORT INFORMATION
  Report Type: Spontaneous
  Country: CA (occurrence: CA)
  Receive Date: 20120427
  Receipt Date: 20130211
  Transmission Date: 20140127
  Serious: Yes (Other)
  Sender: FDA-Public Use
  Company Number: PHHY2012CA032155

PATIENT
  Sex: Male

DRUGS (1)
  1. SANDOSTATIN LAR [Suspect]
     Indication: GLUCAGONOMA
     Dosage: 30 MG, QMO
     Route: 030
     Dates: start: 20060913

REACTIONS (2)
  - Pancreatic neuroendocrine tumour [Unknown]
  - Nasopharyngitis [Unknown]
